FAERS Safety Report 4929365-9 (Version None)
Quarter: 2006Q1

REPORT INFORMATION
  Report Type: 
  Country: None (occurrence: None)
  Receive Date: 20060127
  Receipt Date: 20051125
  Transmission Date: 20060701
  Serious: Yes (Other)
  Sender: FDA-Public Use
  Company Number: 2005148945

PATIENT
  Age: 74 Year
  Sex: Female
  Weight: 88.4514 kg

DRUGS (11)
  1. LYRICA [Suspect]
     Indication: NEUROPATHY
     Dosage: 100 MG (50 MG, 2 IN 1 D)
     Route: 065
     Dates: start: 20051008
  2. PLAVIX [Concomitant]
  3. SYNTHROID [Concomitant]
  4. ALLOPURINOL [Concomitant]
  5. BEXTRA [Concomitant]
  6. SPIRONOLACTONE [Concomitant]
  7. AMITRIPTYLINE HCL [Concomitant]
  8. . [Concomitant]
  9. ALL OTHER THERAPEUTIC PRODUCTS [Concomitant]
  10. VASERETIC [Concomitant]
  11. CRESTOR [Concomitant]

REACTIONS (1)
  - OEDEMA PERIPHERAL [None]
